FAERS Safety Report 9252563 (Version 1)
Quarter: 2013Q1

REPORT INFORMATION
  Report Type: Spontaneous
  Country: US (occurrence: None)
  Receive Date: 20130305
  Receipt Date: 20130305
  Transmission Date: 20140127
  Serious: Yes (Other)
  Sender: FDA-Public Use
  Company Number: 163-21880-12091486 (0)

PATIENT
  Age: 57 Year
  Sex: Male
  Weight: 98.88 kg

DRUGS (9)
  1. REVLIMID [Suspect]
     Indication: PLASMA CELL MYELOMA
     Dosage: 1 IN 1 D
     Route: 048
     Dates: start: 201007
  2. ACYCLOVIR(ACICLOVIR)(UNKNOWN) [Concomitant]
  3. ANTACIDS(ANTACIDS)(UNKNOWN) [Concomitant]
  4. COREG(CARVEDILOL)(UNKNOWN) [Concomitant]
  5. LASIX(FUROSEMIDE)(UNKNOWN) [Concomitant]
  6. NORVASC(AMLODIPINE BESILATE) (UNKNOWN) [Concomitant]
  7. SOMA (CARISOPRODOL) (UNKNOWN) [Concomitant]
  8. TYLENOL(PARACETAMOL)(UNKNOWN) [Concomitant]
  9. VICODIN(VICODIN)(UNKNOWN) [Concomitant]

REACTIONS (2)
  - Protein total increased [None]
  - Plasma cell myeloma [None]
